FAERS Safety Report 6931671-3 (Version None)
Quarter: 2010Q3

REPORT INFORMATION
  Report Type: 
  Country: None (occurrence: None)
  Receive Date: 20100819
  Receipt Date: 20100812
  Transmission Date: 20110219
  Serious: Yes (Life-Threatening, Other)
  Sender: FDA-Public Use
  Company Number: US-ROXANE LABORATORIES, INC.-2010-RO-01034RO

PATIENT
  Age: 5 Week
  Sex: Male
  Weight: 2 kg

DRUGS (7)
  1. METHADONE HCL [Suspect]
     Route: 048
  2. METHADONE HCL [Suspect]
     Route: 048
  3. L-EPINEPHRINE [Suspect]
     Indication: STRIDOR
     Route: 055
  4. L-EPINEPHRINE [Suspect]
     Indication: OXYGEN CONSUMPTION INCREASED
  5. L-ALBUTEROL [Suspect]
     Indication: STRIDOR
     Route: 055
  6. L-ALBUTEROL [Suspect]
     Indication: OXYGEN CONSUMPTION INCREASED
  7. NALOXONE [Suspect]
     Indication: ACCIDENTAL OVERDOSE
     Route: 030

REACTIONS (4)
  - ACCIDENTAL OVERDOSE [None]
  - CHEST EXPANSION DECREASED [None]
  - LARYNGEAL STENOSIS [None]
  - MEDICATION ERROR [None]
